FAERS Safety Report 7487327-4 (Version None)
Quarter: 2011Q2

REPORT INFORMATION
  Report Type: 
  Country: None (occurrence: None)
  Receive Date: 20110518
  Receipt Date: 20110504
  Transmission Date: 20111010
  Serious: Yes (Other)
  Sender: FDA-Public Use
  Company Number: US-ELI_LILLY_AND_COMPANY-US201004004882

PATIENT
  Sex: Female

DRUGS (8)
  1. ESTROGENIC SUBSTANCE [Concomitant]
  2. SOMA [Concomitant]
  3. ESTROGENIC SUBSTANCE [Concomitant]
  4. FORTEO [Suspect]
     Dosage: 20 UG, DAILY (1/D)
     Route: 065
  5. FORTEO [Suspect]
     Indication: OSTEOPOROSIS
     Dosage: 20 UG, DAILY (1/D)
     Route: 065
     Dates: start: 20100401
  6. DARVOCET [Concomitant]
  7. TRAZODONE HCL [Concomitant]
  8. XANAX [Concomitant]

REACTIONS (15)
  - PAIN IN EXTREMITY [None]
  - SINUSITIS [None]
  - MUSCLE SPASMS [None]
  - INJECTION SITE HAEMATOMA [None]
  - OROPHARYNGEAL PAIN [None]
  - BREAST CANCER IN SITU [None]
  - INFLUENZA LIKE ILLNESS [None]
  - BONE PAIN [None]
  - BREAST CALCIFICATIONS [None]
  - FALL [None]
  - ARTHRALGIA [None]
  - TOOTH FRACTURE [None]
  - BRONCHITIS [None]
  - BREAST FIBROMA [None]
  - NASAL DISCOMFORT [None]
